FAERS Safety Report 9626328 (Version 2)
Quarter: 2013Q4

REPORT INFORMATION
  Report Type: Spontaneous
  Country: CH (occurrence: CH)
  Receive Date: 20131016
  Receipt Date: 20131016
  Transmission Date: 20140711
  Serious: Yes (Disabling, Other)
  Sender: FDA-Public Use
  Company Number: CH-ABBVIE-13X-151-1066653-00

PATIENT
  Age: 44 Year
  Sex: Female

DRUGS (7)
  1. KLACID [Suspect]
     Indication: BRONCHITIS
     Route: 048
     Dates: start: 20130318, end: 20130319
  2. KLACID [Suspect]
     Indication: INFLUENZA
  3. KLACID [Suspect]
     Indication: SINUSITIS
  4. KLACID [Suspect]
     Indication: GENERAL PHYSICAL HEALTH DETERIORATION
  5. LEMOCIN [Concomitant]
     Indication: OROPHARYNGEAL PAIN
     Dosage: 4MG / 1MG / 2MG
  6. AMOXICILLIN [Concomitant]
     Indication: BRONCHITIS
     Dates: start: 20130320
  7. EUTHYROX [Concomitant]
     Indication: HYPOTHYROIDISM
     Route: 048
     Dates: start: 2009

REACTIONS (8)
  - Dry mouth [Not Recovered/Not Resolved]
  - Anosmia [Not Recovered/Not Resolved]
  - Ageusia [Not Recovered/Not Resolved]
  - Hypoacusis [Not Recovered/Not Resolved]
  - Glossitis [Not Recovered/Not Resolved]
  - Alopecia [Not Recovered/Not Resolved]
  - Quality of life decreased [Not Recovered/Not Resolved]
  - Dry throat [Not Recovered/Not Resolved]
